FAERS Safety Report 8483476-2 (Version None)
Quarter: 2012Q3

REPORT INFORMATION
  Report Type: 
  Country: None (occurrence: None)
  Receive Date: 20120702
  Receipt Date: 20120620
  Transmission Date: 20120928
  Serious: No
  Sender: FDA-Public Use
  Company Number: JP-ELI_LILLY_AND_COMPANY-JP201206007966

PATIENT
  Age: 45 Year
  Sex: Male

DRUGS (4)
  1. LOSARTAN POTASSIUM [Concomitant]
     Dosage: UNK
     Route: 048
  2. CYMBALTA [Suspect]
     Dosage: 40 MG, QD
     Route: 048
  3. FLUVOXAMINE MALEATE [Concomitant]
     Dosage: UNK
     Route: 048
  4. AMLODIPINE [Concomitant]
     Dosage: UNK
     Route: 048

REACTIONS (4)
  - MANIA [None]
  - ALANINE AMINOTRANSFERASE INCREASED [None]
  - BLOOD TRIGLYCERIDES INCREASED [None]
  - BLOOD URIC ACID INCREASED [None]
